FAERS Safety Report 6149873-5 (Version None)
Quarter: 2009Q2

REPORT INFORMATION
  Report Type: 
  Country: None (occurrence: None)
  Receive Date: 20090409
  Receipt Date: 20090331
  Transmission Date: 20091009
  Serious: Yes (Other)
  Sender: FDA-Public Use
  Company Number: US-PFIZER INC-2009193660

PATIENT
  Sex: Female
  Weight: 57 kg

DRUGS (4)
  1. PROVERA [Suspect]
     Indication: MENOPAUSAL SYMPTOMS
     Dosage: 2.5-10 MG, UNK
     Route: 065
     Dates: start: 19870601, end: 19980501
  2. OGEN [Suspect]
     Indication: MENOPAUSAL SYMPTOMS
     Dosage: UNK
     Route: 065
     Dates: start: 19870601, end: 19980501
  3. ESTROPIPATE [Suspect]
     Indication: MENOPAUSAL SYMPTOMS
     Dosage: UNK
     Route: 065
     Dates: start: 19980601, end: 20011001
  4. CYCRIN [Suspect]
     Indication: MENOPAUSAL SYMPTOMS
     Dosage: UNK
     Route: 065
     Dates: start: 19980601, end: 20011001

REACTIONS (1)
  - BREAST CANCER FEMALE [None]
